FAERS Safety Report 19062343 (Version 1)
Quarter: 2021Q1

REPORT INFORMATION
  Report Type: Spontaneous
  Country: US (occurrence: US)
  Receive Date: 20210326
  Receipt Date: 20210326
  Transmission Date: 20210420
  Serious: Yes (Death, Other)
  Sender: FDA-Public Use
  Company Number: US-PACIRA-2021000257

PATIENT

DRUGS (2)
  1. EXPAREL [Suspect]
     Active Substance: BUPIVACAINE
     Dosage: 266 MG PREPARED AS ONE 1.3% 20ML VIAL IN 60 ML OF PRESERVATIVE?FREE NORMAL (0.9%) STERILE SALINE
     Route: 050
  2. NORMAL SALINE [Concomitant]
     Active Substance: SODIUM CHLORIDE
     Dosage: 60 ML WITH 266 MG (20 ML) OF EXPAREL FOR A TOTAL VOLUME OF 80 ML
     Route: 050

REACTIONS (4)
  - Surgery [Unknown]
  - Incorrect dose administered [Unknown]
  - Death [Fatal]
  - Endotracheal intubation [Unknown]
